FAERS Safety Report 9261872 (Version 1)
Quarter: 2013Q2

REPORT INFORMATION
  Report Type: Spontaneous
  Country: US (occurrence: US)
  Receive Date: 20130429
  Receipt Date: 20130429
  Transmission Date: 20140414
  Serious: No
  Sender: FDA-Public Use
  Company Number: US-TEVA-397445USA

PATIENT
  Age: 53 Year
  Sex: Male

DRUGS (1)
  1. FENTORA [Suspect]
     Indication: PAIN
     Dosage: 600
     Route: 002

REACTIONS (1)
  - Blood pressure increased [Not Recovered/Not Resolved]
